FAERS Safety Report 7932010 (Version 11)
Quarter: 2013Q2

REPORT INFORMATION
  Report Type: Report from Study
  Country: US (occurrence: US)
  Receive Date: 20110505
  Receipt Date: 20130612
  Transmission Date: 20140414
  Serious: Yes (Death, Hospitalization)
  Sender: FDA-Public Use
  Company Number: US-BRISTOL-MYERS SQUIBB COMPANY-15718224

PATIENT
  Age: 59 Year
  Sex: Female

DRUGS (4)
  1. IPILIMUMAB [Suspect]
     Indication: MALIGNANT MELANOMA
     Dosage: RECEIVED 415MG
     Route: 042
     Dates: start: 20110405, end: 20110609
  2. SYNTHROID [Concomitant]
     Dates: start: 20110505
  3. REMERON [Concomitant]
     Dates: start: 20110505
  4. FLOMAX [Concomitant]
     Dates: start: 20110505

REACTIONS (6)
  - Malignant neoplasm progression [Fatal]
  - Spinal cord compression [Recovered/Resolved with Sequelae]
  - Pain [Recovered/Resolved]
  - Pyrexia [Unknown]
  - Diarrhoea [Recovered/Resolved]
  - Dehydration [Recovered/Resolved]
